FAERS Safety Report 20407125 (Version 1)
Quarter: 2022Q1

REPORT INFORMATION
  Report Type: Spontaneous
  Country: DE (occurrence: DE)
  Receive Date: 20220131
  Receipt Date: 20220131
  Transmission Date: 20220423
  Serious: Yes (Hospitalization)
  Sender: FDA-Public Use
  Company Number: DE-NOVARTISPH-NVSC2022DE016086

PATIENT

DRUGS (3)
  1. SALBUHEXAL [Suspect]
     Active Substance: ALBUTEROL
     Indication: Asthma
     Dosage: UNK
     Route: 065
     Dates: start: 2020
  2. SALBUHEXAL [Suspect]
     Active Substance: ALBUTEROL
     Indication: Nasopharyngitis
  3. CETIRIZINE [Suspect]
     Active Substance: CETIRIZINE HYDROCHLORIDE
     Indication: Nasopharyngitis
     Dosage: UNK
     Route: 065
     Dates: start: 2020

REACTIONS (12)
  - Feeling abnormal [Unknown]
  - Gait disturbance [Unknown]
  - Nasopharyngitis [Unknown]
  - Overdose [Recovered/Resolved]
  - Respiratory syncytial virus infection [Unknown]
  - Palpitations [Unknown]
  - Heart rate increased [Unknown]
  - Pulmonary function test decreased [Unknown]
  - Cough [Unknown]
  - Hypersensitivity [Unknown]
  - Asthma [Unknown]
  - Dyspnoea [Unknown]

NARRATIVE: CASE EVENT DATE: 20210101
